FAERS Safety Report 12533103 (Version 2)
Quarter: 2016Q4

REPORT INFORMATION
  Report Type: Spontaneous
  Country: GB (occurrence: GB)
  Receive Date: 20160706
  Receipt Date: 20161111
  Transmission Date: 20170207
  Serious: Yes (Disabling)
  Sender: FDA-Public Use
  Company Number: GB-ABBVIE-16P-167-1668937-00

PATIENT
  Age: 1 Hour
  Sex: Female

DRUGS (1)
  1. VALPROATE SODIUM. [Suspect]
     Active Substance: VALPROATE SODIUM
     Indication: MATERNAL EXPOSURE TIMING UNSPECIFIED
     Route: 064

REACTIONS (8)
  - Sensory processing disorder [Unknown]
  - Foetal anticonvulsant syndrome [Unknown]
  - Developmental delay [Unknown]
  - Premature baby [Unknown]
  - Learning disorder [Unknown]
  - Autism [Unknown]
  - Incontinence [Unknown]
  - Foetal exposure during pregnancy [Unknown]

NARRATIVE: CASE EVENT DATE: 2006
